FAERS Safety Report 24951912 (Version 2)
Quarter: 2025Q1

REPORT INFORMATION
  Report Type: Report from Study
  Country: US (occurrence: US)
  Receive Date: 20250210
  Receipt Date: 20250306
  Transmission Date: 20250408
  Serious: Yes (Disabling)
  Sender: ALEXION PHARMACEUTICALS
  Company Number: US-ASTRAZENECA-202502USA004909US

PATIENT
  Age: 64 Year

DRUGS (1)
  1. STRENSIQ [Suspect]
     Active Substance: ASFOTASE ALFA
     Indication: Phosphorus metabolism disorder
     Dosage: 70 MILLIGRAM, SIX TIMES/WEEK
     Route: 065

REACTIONS (2)
  - Gait disturbance [Unknown]
  - Pain in extremity [Not Recovered/Not Resolved]
